FAERS Safety Report 25228763 (Version 2)
Quarter: 2025Q3

REPORT INFORMATION
  Report Type: Spontaneous
  Country: US (occurrence: US)
  Receive Date: 20250423
  Receipt Date: 20250809
  Transmission Date: 20251020
  Serious: Yes (Life-Threatening, Hospitalization, Other)
  Sender: ALEXION PHARMACEUTICALS
  Company Number: US-ASTRAZENECA-202504GLO018190US

PATIENT
  Age: 68 Year
  Sex: Male

DRUGS (2)
  1. DURVALUMAB [Suspect]
     Active Substance: DURVALUMAB
     Indication: Histiocytosis
     Route: 065
  2. TREMELIMUMAB [Suspect]
     Active Substance: TREMELIMUMAB
     Indication: Histiocytosis
     Route: 065

REACTIONS (2)
  - Atrioventricular block complete [Recovering/Resolving]
  - Immune-mediated myocarditis [Unknown]
